FAERS Safety Report 10045025 (Version 2)
Quarter: 2014Q2

REPORT INFORMATION
  Report Type: Spontaneous
  Country: US (occurrence: US)
  Receive Date: 20140328
  Receipt Date: 20140410
  Transmission Date: 20141212
  Serious: No
  Sender: FDA-Public Use
  Company Number: US-009507513-1403USA012305

PATIENT
  Age: 18 Month
  Sex: Female

DRUGS (1)
  1. JANUVIA [Suspect]
     Dosage: 5.5 MG/KG, BY PILL COUNT
     Route: 048

REACTIONS (3)
  - Accidental exposure to product by child [Unknown]
  - Overdose [Unknown]
  - No adverse event [Unknown]
